FAERS Safety Report 9110447 (Version 1)
Quarter: 2013Q1

REPORT INFORMATION
  Report Type: Spontaneous
  Country: US (occurrence: US)
  Receive Date: 20130219
  Receipt Date: 20130219
  Transmission Date: 20140127
  Serious: Yes (Hospitalization)
  Sender: FDA-Public Use
  Company Number: US-BRACCO-007832

PATIENT
  Age: 11 Year
  Sex: Male

DRUGS (2)
  1. ISOVUE 300 [Suspect]
     Indication: COMPUTERISED TOMOGRAM ABDOMEN
     Route: 042
     Dates: start: 20120405, end: 20120405
  2. ISOVUE 300 [Suspect]
     Indication: ABDOMINAL PAIN
     Route: 042
     Dates: start: 20120405, end: 20120405

REACTIONS (1)
  - Contrast media reaction [Recovered/Resolved]
